FAERS Safety Report 4335378-0 (Version None)
Quarter: 2004Q2

REPORT INFORMATION
  Report Type: 
  Country: None (occurrence: None)
  Receive Date: 20040408
  Receipt Date: 20040408
  Transmission Date: 20050107
  Serious: Yes (Hospitalization)
  Sender: FDA-Public Use
  Company Number: None

PATIENT
  Sex: Female
  Weight: 91 kg

DRUGS (8)
  1. LABETALOL HCL [Suspect]
     Indication: HYPERTENSION
     Dosage: 1300MG PO BID
     Route: 048
     Dates: start: 20040118
  2. DILTIAZEM [Concomitant]
  3. FUROSEMIDE [Concomitant]
  4. NIFEDIPINE [Concomitant]
  5. DILANTIN [Concomitant]
  6. CLONIDINE [Concomitant]
  7. FAMOTIDINE [Concomitant]
  8. MAG OX [Concomitant]

REACTIONS (8)
  - ACCIDENTAL OVERDOSE [None]
  - ASTHENIA [None]
  - BLOOD PRESSURE DECREASED [None]
  - DIZZINESS [None]
  - HEART RATE DECREASED [None]
  - MEDICATION ERROR [None]
  - NAUSEA [None]
  - RESTLESSNESS [None]
